FAERS Safety Report 19617581 (Version 3)
Quarter: 2021Q3

REPORT INFORMATION
  Report Type: Spontaneous
  Country: JP (occurrence: JP)
  Receive Date: 20210727
  Receipt Date: 20210907
  Transmission Date: 20211014
  Serious: Yes (Hospitalization, Other)
  Sender: FDA-Public Use
  Company Number: JP-GLAXOSMITHKLINE-JPCH2021048498

PATIENT
  Age: 40 Year
  Sex: Female
  Weight: 49 kg

DRUGS (6)
  1. DICLOFENAC SODIUM. [Suspect]
     Active Substance: DICLOFENAC SODIUM
     Indication: TUMOUR PAIN
     Dosage: 37.5 MG
     Route: 048
     Dates: start: 20210624, end: 20210628
  2. EDOXABAN TOSILATE MONOHYDRATE [Suspect]
     Active Substance: EDOXABAN TOSYLATE
     Indication: VENOUS THROMBOSIS
     Dosage: 30 MG, QD
     Route: 048
     Dates: start: 20210415, end: 20210628
  3. CARBOPLATIN. [Suspect]
     Active Substance: CARBOPLATIN
     Indication: CERVIX CARCINOMA
     Dosage: 645 MG
     Route: 042
     Dates: start: 20210415, end: 20210528
  4. BINTRAFUSP ALFA. [Suspect]
     Active Substance: BINTRAFUSP ALFA
     Indication: CERVIX CARCINOMA
     Dosage: 2400 MG, Q3W
     Route: 042
     Dates: start: 20210415, end: 20210528
  5. PACLITAXEL. [Suspect]
     Active Substance: PACLITAXEL
     Indication: CERVIX CARCINOMA
     Dosage: 264 MG
     Route: 042
     Dates: start: 20210415, end: 20210528
  6. LOXOPROFEN SODIUM DIHYDRATE [Suspect]
     Active Substance: LOXOPROFEN SODIUM DIHYDRATE
     Indication: TUMOUR PAIN
     Dosage: 60 MG, TID
     Route: 048
     Dates: start: 20210322, end: 20210628

REACTIONS (1)
  - Gastric haemorrhage [Recovered/Resolved]

NARRATIVE: CASE EVENT DATE: 20210628
